FAERS Safety Report 9283716 (Version 1)
Quarter: 2013Q2

REPORT INFORMATION
  Report Type: Spontaneous
  Country: BR (occurrence: None)
  Receive Date: 20130506
  Receipt Date: 20130506
  Transmission Date: 20140414
  Serious: Yes (Other)
  Sender: FDA-Public Use
  Company Number: SYM-2013-03232

PATIENT
  Age: 63 Year
  Sex: Female

DRUGS (6)
  1. FLUOROURACIL (FLUOROURACIL)(FLUOROURACIL) [Suspect]
     Indication: COLON CANCER METASTATIC
  2. OXALIPLATIN [Suspect]
     Indication: COLON CANCER METASTATIC
  3. LEUCOVORIN (FOLINIC ACID) (FOLINIC ACID) [Suspect]
     Indication: COLON CANCER METASTATIC
  4. CETUXIMAB [Suspect]
     Indication: COLON CANCER METASTATIC
  5. BEVACIZUMAB (BEVACIZUMAB)(BEVACIZUMAB) [Concomitant]
  6. IRINOTECAN (IRINOTECAN) (IRINOTECAN) [Concomitant]

REACTIONS (7)
  - Hydronephrosis [None]
  - Splenomegaly [None]
  - Nausea [None]
  - Vomiting [None]
  - Stomatitis [None]
  - Diarrhoea [None]
  - Neutropenia [None]
